FAERS Safety Report 6669720-2 (Version None)
Quarter: 2010Q2

REPORT INFORMATION
  Report Type: 
  Country: None (occurrence: None)
  Receive Date: 20100402
  Receipt Date: 20100317
  Transmission Date: 20101027
  Serious: Yes (Hospitalization)
  Sender: FDA-Public Use
  Company Number: 008371

PATIENT
  Age: 78 Year
  Sex: Male

DRUGS (9)
  1. PLETAL [Suspect]
     Indication: ARTERIOSCLEROSIS OBLITERANS
     Dosage: ORAL; 45 DF, SINGLE; ORAL
     Route: 048
     Dates: start: 20090924, end: 20090924
  2. PIRESPA (PIRFENIDONE) TABLET [Suspect]
     Indication: IDIOPATHIC PULMONARY FIBROSIS
     Dosage: 200 MG TID, ORAL; 400 MG, TID; ORAL; 600 MG, TID; ORAL; 57 DF, SINGLE, ORAL
     Route: 048
     Dates: start: 20090924, end: 20090924
  3. PIRESPA (PIRFENIDONE) TABLET [Suspect]
     Indication: IDIOPATHIC PULMONARY FIBROSIS
     Dosage: 200 MG TID, ORAL; 400 MG, TID; ORAL; 600 MG, TID; ORAL; 57 DF, SINGLE, ORAL
     Route: 048
     Dates: start: 20090820
  4. PIRESPA (PIRFENIDONE) TABLET [Suspect]
     Indication: IDIOPATHIC PULMONARY FIBROSIS
     Dosage: 200 MG TID, ORAL; 400 MG, TID; ORAL; 600 MG, TID; ORAL; 57 DF, SINGLE, ORAL
     Route: 048
     Dates: start: 20090903
  5. PIRESPA (PIRFENIDONE) TABLET [Suspect]
     Indication: IDIOPATHIC PULMONARY FIBROSIS
     Dosage: 200 MG TID, ORAL; 400 MG, TID; ORAL; 600 MG, TID; ORAL; 57 DF, SINGLE, ORAL
     Route: 048
     Dates: start: 20090917
  6. URIEF (SILODOSIN) [Concomitant]
  7. TAMSULOSIN HCL [Concomitant]
  8. SODIUM AZULENE SULFONATE/ L-GLUTAMINE (SODIUM AZULENE SULFONATE/L-GLUT [Concomitant]
  9. LANSOPRAZOLE [Concomitant]

REACTIONS (6)
  - ABDOMINAL DISCOMFORT [None]
  - ALTERED STATE OF CONSCIOUSNESS [None]
  - BLOOD CREATININE INCREASED [None]
  - HAEMATOCRIT INCREASED [None]
  - INTENTIONAL OVERDOSE [None]
  - MENTAL DISORDER [None]
